FAERS Safety Report 8229602-1 (Version None)
Quarter: 2012Q1

REPORT INFORMATION
  Report Type: 
  Country: None (occurrence: None)
  Receive Date: 20120322
  Receipt Date: 20120314
  Transmission Date: 20120608
  Serious: Yes (Hospitalization, Other)
  Sender: FDA-Public Use
  Company Number: PHHY2012MX023257

PATIENT
  Sex: Male

DRUGS (2)
  1. KETOROLAC TROMETHAMINE [Concomitant]
     Indication: PAIN
  2. ONBREZ [Suspect]
     Indication: ASTHMA
     Dosage: 150 UG, QD
     Dates: start: 20120216

REACTIONS (1)
  - OESOPHAGEAL NEOPLASM [None]
